FAERS Safety Report 4666569-7 (Version None)
Quarter: 2005Q2

REPORT INFORMATION
  Report Type: 
  Country: None (occurrence: None)
  Receive Date: 20050517
  Receipt Date: 20050511
  Transmission Date: 20051028
  Serious: Yes (Death, Other)
  Sender: FDA-Public Use
  Company Number: USA050392610

PATIENT
  Age: 70 Year
  Sex: Female

DRUGS (1)
  1. XIGRIS [Suspect]
     Indication: SEPSIS
     Dosage: 24 UG/KG/HR

REACTIONS (7)
  - DISEASE PROGRESSION [None]
  - DRUG ERUPTION [None]
  - JAUNDICE [None]
  - LUNG INFECTION PSEUDOMONAL [None]
  - PERITONITIS [None]
  - RECTAL LESION [None]
  - THROMBOSIS [None]
